FAERS Safety Report 6178946-6 (Version None)
Quarter: 2009Q2

REPORT INFORMATION
  Report Type: 
  Country: None (occurrence: None)
  Receive Date: 20090505
  Receipt Date: 20090428
  Transmission Date: 20091009
  Serious: No
  Sender: FDA-Public Use
  Company Number: US-JNJFOC-20090406989

PATIENT
  Sex: Female
  Weight: 76.2 kg

DRUGS (11)
  1. FENTANYL TRANSDERMAL SYSTEM [Suspect]
     Indication: PAIN IN EXTREMITY
     Route: 062
  2. FENTANYL TRANSDERMAL SYSTEM [Suspect]
     Indication: BACK PAIN
     Route: 062
  3. NEURONTIN [Concomitant]
     Indication: RHEUMATOID ARTHRITIS
     Route: 048
  4. CYMBALTA [Concomitant]
     Indication: PAIN
     Route: 048
  5. CYMBALTA [Concomitant]
     Indication: DEPRESSION
     Route: 048
  6. ESSIAN [Concomitant]
     Indication: HORMONE LEVEL ABNORMAL
     Route: 048
  7. SYNTHROID [Concomitant]
     Indication: THYROID DISORDER
     Route: 048
  8. VITAMIN D [Concomitant]
     Indication: HYPOVITAMINOSIS
     Route: 048
  9. CARVEDILOL [Concomitant]
     Indication: HYPERTENSION
     Route: 048
  10. BENAZEPRIL HCTZ [Concomitant]
     Indication: HYPERTENSION
     Route: 048
  11. SULFASALAZINE [Concomitant]
     Indication: RHEUMATOID ARTHRITIS
     Route: 048

REACTIONS (3)
  - ABASIA [None]
  - PAIN [None]
  - TREATMENT NONCOMPLIANCE [None]
